FAERS Safety Report 16850244 (Version 3)
Quarter: 2025Q2

REPORT INFORMATION
  Report Type: Report from Study
  Country: US (occurrence: US)
  Receive Date: 20190925
  Receipt Date: 20250605
  Transmission Date: 20250716
  Serious: No
  Sender: TAKEDA
  Company Number: US-SHIRE-US201931332

PATIENT
  Sex: Female
  Weight: 33.107 kg

DRUGS (8)
  1. LANADELUMAB [Suspect]
     Active Substance: LANADELUMAB
     Indication: Hereditary angioedema
     Dosage: UNK UNK, Q2WEEKS
  2. CINRYZE [Suspect]
     Active Substance: HUMAN C1-ESTERASE INHIBITOR
     Indication: Immune system disorder
     Dosage: 500 INTERNATIONAL UNIT, 2/WEEK
     Dates: start: 20180927
  3. CINRYZE [Suspect]
     Active Substance: HUMAN C1-ESTERASE INHIBITOR
     Dosage: 500 INTERNATIONAL UNIT, 2/WEEK
     Dates: start: 20190815
  4. CINRYZE [Suspect]
     Active Substance: HUMAN C1-ESTERASE INHIBITOR
  5. SODIUM CHLORIDE [Concomitant]
     Active Substance: SODIUM CHLORIDE
  6. STERILE WATER [Concomitant]
     Active Substance: WATER
  7. EPINEPHRINE [Concomitant]
     Active Substance: EPINEPHRINE
  8. HERBALS [Concomitant]
     Active Substance: HERBALS

REACTIONS (5)
  - COVID-19 [Unknown]
  - Lacrimation increased [Recovered/Resolved]
  - Product use issue [Unknown]
  - Insurance issue [Unknown]
  - Infusion site pain [Recovered/Resolved]
